FAERS Safety Report 5689132-8 (Version None)
Quarter: 2008Q1

REPORT INFORMATION
  Report Type: 
  Country: None (occurrence: None)
  Receive Date: 20080328
  Receipt Date: 20080319
  Transmission Date: 20080703
  Serious: Yes (Death)
  Sender: FDA-Public Use
  Company Number: 08H-163-0314034-00

PATIENT
  Age: 85 Year
  Sex: Female

DRUGS (26)
  1. HEPARIN SODIUM [Suspect]
     Indication: THROMBOSIS
     Dosage: 5000 UNITS/0.5ML, SUBCUTANEOUS
     Route: 058
     Dates: start: 20080222
  2. DULCOLAX (DOCUSATE SODIUM) [Concomitant]
  3. CIPRO [Concomitant]
  4. ZANTAC [Concomitant]
  5. LEXAPRO [Concomitant]
  6. CRESTOR [Concomitant]
  7. LOVENOX [Concomitant]
  8. INSULIN (INSULIN) [Concomitant]
  9. PLAVIX [Concomitant]
  10. ASPIRIN [Concomitant]
  11. COREG [Concomitant]
  12. CORDARONE [Concomitant]
  13. PHENERGAN [Concomitant]
  14. MORPHINE [Concomitant]
  15. COUMADIN [Concomitant]
  16. POTASSIUM (POTASSIUM) [Concomitant]
  17. NEXIUM [Concomitant]
  18. LUNESTA [Concomitant]
  19. LORATAB (LORATADINE) [Concomitant]
  20. DARVOCET (APOREX) [Concomitant]
  21. LASIX [Concomitant]
  22. WARFARIN SODIUM [Concomitant]
  23. CARAFATE [Concomitant]
  24. ZOFRAN [Concomitant]
  25. DILAUDID [Concomitant]
  26. MILK OF MAGNESIA TAB [Concomitant]

REACTIONS (5)
  - DRUG HYPERSENSITIVITY [None]
  - DRUG INEFFECTIVE [None]
  - LEG AMPUTATION [None]
  - MULTI-ORGAN FAILURE [None]
  - THROMBOSIS [None]
